FAERS Safety Report 7522817-7 (Version None)
Quarter: 2011Q2

REPORT INFORMATION
  Report Type: 
  Country: None (occurrence: None)
  Receive Date: 20110603
  Receipt Date: 20110527
  Transmission Date: 20111010
  Serious: Yes (Other)
  Sender: FDA-Public Use
  Company Number: AU-PFIZER INC-2011085868

PATIENT
  Sex: Female

DRUGS (7)
  1. MONOPRIL [Concomitant]
  2. DILANTIN [Suspect]
     Indication: CRANIAL OPERATION
  3. VALIUM [Suspect]
     Dosage: 1 MG, UNK
  4. ACETYLSALICYLIC ACID [Concomitant]
     Dosage: HALF A TABLET
  5. DILANTIN [Suspect]
     Indication: CONVULSION
  6. DILANTIN [Suspect]
     Indication: PROPHYLAXIS
     Dosage: 100 MG, 3X/DAY
     Route: 048
     Dates: start: 20090228, end: 20090801
  7. DILANTIN [Suspect]
     Indication: PETIT MAL EPILEPSY

REACTIONS (16)
  - CONFUSIONAL STATE [None]
  - APHAGIA [None]
  - DEPRESSION [None]
  - ATAXIA [None]
  - INSOMNIA [None]
  - SYNCOPE [None]
  - ACTIVITIES OF DAILY LIVING IMPAIRED [None]
  - EYE DISORDER [None]
  - SPEECH DISORDER [None]
  - SOMNOLENCE [None]
  - HYPOAESTHESIA [None]
  - FEELING ABNORMAL [None]
  - APHASIA [None]
  - NERVE INJURY [None]
  - DRUG LEVEL ABOVE THERAPEUTIC [None]
  - WEIGHT DECREASED [None]
